FAERS Safety Report 10331786 (Version 1)
Quarter: 2014Q3

REPORT INFORMATION
  Report Type: Spontaneous
  Country: IL (occurrence: IL)
  Receive Date: 20140722
  Receipt Date: 20140722
  Transmission Date: 20150326
  Serious: Yes (Death, Congenital Anomaly)
  Sender: FDA-Public Use
  Company Number: PHHY2014IL088712

PATIENT

DRUGS (2)
  1. PERPHENAZINE. [Suspect]
     Active Substance: PERPHENAZINE
     Route: 064
  2. LITHIUM [Suspect]
     Active Substance: LITHIUM CARBONATE
     Dosage: (MATERNAL DOSE: 900 MG/DAY)
     Route: 064

REACTIONS (4)
  - Stillbirth [Fatal]
  - Foetal exposure during pregnancy [Unknown]
  - Heart disease congenital [Unknown]
  - Respiratory tract malformation [Unknown]
